FAERS Safety Report 6114266-3 (Version None)
Quarter: 2009Q1

REPORT INFORMATION
  Report Type: 
  Country: None (occurrence: None)
  Receive Date: 20090312
  Receipt Date: 20081016
  Transmission Date: 20090719
  Serious: No
  Sender: FDA-Public Use
  Company Number: US-ABBOTT-08P-163-0482157-00

PATIENT
  Sex: Male

DRUGS (4)
  1. DEPAKOTE [Suspect]
     Indication: BIPOLAR DISORDER
     Route: 048
     Dates: start: 20010101, end: 20040101
  2. DEPAKOTE [Suspect]
     Route: 048
     Dates: start: 20070101
  3. PRINZIDE [Suspect]
     Indication: HYPERTENSION
     Dates: start: 20080701, end: 20080801
  4. AMLODIPINE [Suspect]
     Indication: HYPERTENSION
     Dates: start: 20080101, end: 20080101

REACTIONS (3)
  - ALOPECIA [None]
  - INCREASED APPETITE [None]
  - WEIGHT INCREASED [None]
